FAERS Safety Report 6217362-5 (Version None)
Quarter: 2009Q2

REPORT INFORMATION
  Report Type: 
  Country: None (occurrence: None)
  Receive Date: 20090608
  Receipt Date: 20081001
  Transmission Date: 20091009
  Serious: No
  Sender: FDA-Public Use
  Company Number: A0742225A

PATIENT
  Age: 65 Year
  Sex: Female

DRUGS (6)
  1. WELLBUTRIN XL [Suspect]
     Indication: DEPRESSION
     Dosage: 450MG PER DAY
     Route: 048
  2. CYMBALTA [Concomitant]
     Dosage: 90MGD PER DAY
     Route: 048
  3. DIOVAN [Concomitant]
     Dosage: 320MGD PER DAY
     Route: 048
  4. ZOCOR [Concomitant]
     Dosage: 40MG UNKNOWN
     Route: 048
  5. PRILOSEC [Concomitant]
  6. TRAZODONE HCL [Concomitant]
     Dosage: 50MGD PER DAY
     Route: 048

REACTIONS (3)
  - DRUG INEFFECTIVE [None]
  - NERVOUSNESS [None]
  - TREMOR [None]
